FAERS Safety Report 9412374 (Version 5)
Quarter: 2015Q3

REPORT INFORMATION
  Report Type: Report from Study
  Country: DE (occurrence: DE)
  Receive Date: 20130722
  Receipt Date: 20150806
  Transmission Date: 20151125
  Serious: Yes (Hospitalization, Other)
  Sender: FDA-Public Use
  Company Number: DE-UCBSA-090218

PATIENT
  Age: 25 Year
  Sex: Female

DRUGS (12)
  1. CLEXANE [Concomitant]
     Active Substance: ENOXAPARIN SODIUM
     Indication: PROPHYLAXIS
     Dosage: 0.4 ML, ONCE DAILY (QD)
     Route: 058
     Dates: start: 20130605
  2. CARBAMAZEPINE. [Concomitant]
     Active Substance: CARBAMAZEPINE
     Dates: start: 2002, end: 2002
  3. CARBAMAZEPINE. [Concomitant]
     Active Substance: CARBAMAZEPINE
     Dosage: 600 MG, 2X/DAY (BID)
     Dates: end: 201302
  4. FRISIUM [Concomitant]
     Active Substance: CLOBAZAM
     Dosage: 10 MG, 3X/DAY (TID)
     Dates: start: 2013, end: 2013
  5. LEVETIRACETAM. [Suspect]
     Active Substance: LEVETIRACETAM
     Indication: EPILEPSY
     Dosage: 750 MG, 2X/DAY (BID)
     Route: 048
     Dates: start: 2013, end: 2013
  6. LEVETIRACETAM. [Suspect]
     Active Substance: LEVETIRACETAM
     Dosage: DAILY DOSE : 3000 MG
     Route: 048
     Dates: start: 201310
  7. LACOSAMIDE [Suspect]
     Active Substance: LACOSAMIDE
     Indication: EPILEPSY
     Dosage: 300 MG DAILY
     Route: 048
     Dates: start: 20130607, end: 201306
  8. FRISIUM [Concomitant]
     Active Substance: CLOBAZAM
     Dosage: DOSE TAPERED
     Dates: start: 2013, end: 20130615
  9. FRISIUM [Concomitant]
     Active Substance: CLOBAZAM
     Dosage: DAILY DOSE : 15 MG
     Dates: start: 2013, end: 2013
  10. FRISIUM [Concomitant]
     Active Substance: CLOBAZAM
     Dosage: DOSE REDUCED
     Dates: start: 2013
  11. LACOSAMIDE [Suspect]
     Active Substance: LACOSAMIDE
     Dosage: 250 MG, 2X/DAY (BID)
     Route: 048
     Dates: start: 201306, end: 20130619
  12. TRIGOA [Concomitant]
     Active Substance: ETHINYL ESTRADIOL\LEVONORGESTREL

REACTIONS (5)
  - Seizure [Unknown]
  - Off label use [Unknown]
  - Rash [Recovered/Resolved]
  - Adverse event [Unknown]
  - Overdose [Unknown]

NARRATIVE: CASE EVENT DATE: 201306
